FAERS Safety Report 4659993-X (Version None)
Quarter: 2005Q2

REPORT INFORMATION
  Report Type: 
  Country: None (occurrence: None)
  Receive Date: 20050510
  Receipt Date: 20050228
  Transmission Date: 20051028
  Serious: Yes (Other)
  Sender: FDA-Public Use
  Company Number: 2005039528

PATIENT
  Sex: Male

DRUGS (2)
  1. DETROL [Suspect]
     Indication: ILL-DEFINED DISORDER
  2. ETHANOL (ETHANOL) [Concomitant]
     Indication: ILL-DEFINED DISORDER

REACTIONS (4)
  - ADVERSE DRUG REACTION [None]
  - ALCOHOL USE [None]
  - TRANSURETHRAL PROSTATECTOMY [None]
  - URINARY INCONTINENCE [None]
